FAERS Safety Report 14339936 (Version 2)
Quarter: 2018Q1

REPORT INFORMATION
  Report Type: Report from Study
  Country: US (occurrence: US)
  Receive Date: 20171231
  Receipt Date: 20180211
  Transmission Date: 20180509
  Serious: No
  Sender: FDA-Public Use
  Company Number: PHEH2017US042208

PATIENT
  Age: 88 Year
  Sex: Male

DRUGS (1)
  1. ENTRESTO [Suspect]
     Active Substance: SACUBITRIL\VALSARTAN
     Indication: PRODUCT USED FOR UNKNOWN INDICATION
     Dosage: UNK
     Route: 048

REACTIONS (5)
  - Hypoacusis [Unknown]
  - Mobility decreased [Unknown]
  - Fall [Recovered/Resolved]
  - Joint injury [Unknown]
  - Malaise [Unknown]

NARRATIVE: CASE EVENT DATE: 20171225
